FAERS Safety Report 7692968-5 (Version None)
Quarter: 2011Q3

REPORT INFORMATION
  Report Type: 
  Country: None (occurrence: None)
  Receive Date: 20110819
  Receipt Date: 20110816
  Transmission Date: 20111222
  Serious: Yes (Death)
  Sender: FDA-Public Use
  Company Number: US-AMGEN-USASP2011038187

PATIENT
  Age: 74 Year
  Sex: Female

DRUGS (2)
  1. NPLATE [Suspect]
     Indication: MULTIPLE MYELOMA
     Dosage: 2 A?G/KG, UNK
     Dates: start: 20101201, end: 20110223
  2. NPLATE [Suspect]
     Indication: THROMBOCYTOPENIA

REACTIONS (1)
  - MULTIPLE MYELOMA [None]
